FAERS Safety Report 19000927 (Version 2)
Quarter: 2021Q1

REPORT INFORMATION
  Report Type: Spontaneous
  Country: US (occurrence: US)
  Receive Date: 20210312
  Receipt Date: 20210326
  Transmission Date: 20210420
  Serious: No
  Sender: FDA-Public Use
  Company Number: US-UNITED THERAPEUTICS-UNT-2021-002343

PATIENT
  Age: 48 Year
  Sex: Female
  Weight: 96.6 kg

DRUGS (18)
  1. VELETRI [Suspect]
     Active Substance: EPOPROSTENOL
     Dosage: 2.3 NG/KG/MIN, CONTINUING
     Route: 042
  2. VELETRI [Suspect]
     Active Substance: EPOPROSTENOL
     Dosage: 2.89 NG/KG/MIN, CONTINUING
     Route: 042
  3. OPSUMIT [Concomitant]
     Active Substance: MACITENTAN
     Indication: PULMONARY ARTERIAL HYPERTENSION
     Dosage: 10 MG, QD
     Route: 048
  4. ORENITRAM [Suspect]
     Active Substance: TREPROSTINIL
     Indication: PULMONARY ARTERIAL HYPERTENSION
     Dosage: UNK
     Route: 048
     Dates: start: 20210120
  5. ORENITRAM [Suspect]
     Active Substance: TREPROSTINIL
     Dosage: 1.75 MG, TID
     Route: 048
  6. ORENITRAM [Suspect]
     Active Substance: TREPROSTINIL
     Dosage: 1.5 MG, Q8H
     Route: 048
  7. ORENITRAM [Suspect]
     Active Substance: TREPROSTINIL
     Indication: PULMONARY ARTERIAL HYPERTENSION
     Dosage: UNK
     Route: 048
  8. ORENITRAM [Suspect]
     Active Substance: TREPROSTINIL
     Dosage: UNK
     Route: 048
  9. ORENITRAM [Suspect]
     Active Substance: TREPROSTINIL
     Indication: PULMONARY ARTERIAL HYPERTENSION
     Dosage: UNK
     Route: 048
  10. ADEMPAS [Concomitant]
     Active Substance: RIOCIGUAT
     Indication: PRODUCT USED FOR UNKNOWN INDICATION
     Dosage: UNK
     Route: 065
  11. ORENITRAM [Suspect]
     Active Substance: TREPROSTINIL
     Indication: PULMONARY ARTERIAL HYPERTENSION
     Dosage: UNK
     Route: 048
  12. VELETRI [Suspect]
     Active Substance: EPOPROSTENOL
     Indication: PULMONARY ARTERIAL HYPERTENSION
     Dosage: 2.12 NG/KG/MIN, CONTINUING
     Route: 042
  13. VELETRI [Suspect]
     Active Substance: EPOPROSTENOL
     Dosage: UNK, CONTINUING
     Route: 042
  14. VELETRI [Suspect]
     Active Substance: EPOPROSTENOL
     Dosage: 3.2 NG/KG/MIN, CONTINUING
     Route: 042
  15. VELETRI [Suspect]
     Active Substance: EPOPROSTENOL
     Dosage: UNK, CONTINUING
     Route: 042
  16. VELETRI [Suspect]
     Active Substance: EPOPROSTENOL
     Dosage: 1.04 NG/KG/MIN, CONTINUING
     Route: 042
  17. VELETRI [Suspect]
     Active Substance: EPOPROSTENOL
     Dosage: UNK, CONTINUING
     Route: 042
  18. ORENITRAM [Suspect]
     Active Substance: TREPROSTINIL
     Dosage: 0.25 MG, Q8H
     Route: 048

REACTIONS (12)
  - Headache [Recovering/Resolving]
  - Pain in extremity [Unknown]
  - Gastric disorder [Unknown]
  - Abdominal discomfort [Recovering/Resolving]
  - Muscle spasms [Unknown]
  - Dyspnoea [Unknown]
  - Fatigue [Unknown]
  - Diarrhoea [Unknown]
  - Constipation [Unknown]
  - Catheterisation cardiac abnormal [Unknown]
  - Therapy non-responder [Unknown]
  - Abdominal pain upper [Unknown]

NARRATIVE: CASE EVENT DATE: 20210212
